FAERS Safety Report 24550355 (Version 2)
Quarter: 2024Q4

REPORT INFORMATION
  Report Type: Spontaneous
  Country: PL (occurrence: PL)
  Receive Date: 20241025
  Receipt Date: 20241113
  Transmission Date: 20250115
  Serious: Yes (Hospitalization, Other)
  Sender: VELOXIS PHARMACEUTICALS
  Company Number: PL-002147023-NVSC2024PL200339

PATIENT
  Sex: Male

DRUGS (17)
  1. TACROLIMUS [Suspect]
     Active Substance: TACROLIMUS
     Indication: Product used for unknown indication
     Dosage: 2 MILLIGRAM, QD (INITIAL DOSE 2 MG/24 H THEN ADJUSTED DEPENDING ON CONCENTRATION)
     Route: 065
  2. RUXOLITINIB [Suspect]
     Active Substance: RUXOLITINIB
     Indication: Product used for unknown indication
     Dosage: 5 MG (X2), BID
     Route: 065
  3. MYCOPHENOLATE MOFETIL [Suspect]
     Active Substance: MYCOPHENOLATE MOFETIL
     Indication: Product used for unknown indication
     Dosage: 1 G, Q24H (IN DIVIDED DOSES)
     Route: 065
     Dates: end: 20230728
  4. MYCOPHENOLATE MOFETIL [Suspect]
     Active Substance: MYCOPHENOLATE MOFETIL
     Dosage: 750 MG, Q24H
     Route: 065
     Dates: start: 20230914
  5. MYCOPHENOLATE MOFETIL [Suspect]
     Active Substance: MYCOPHENOLATE MOFETIL
     Dosage: UNK
     Route: 065
     Dates: end: 202403
  6. FLUDARABINE [Concomitant]
     Active Substance: FLUDARABINE PHOSPHATE
     Indication: Product used for unknown indication
     Dosage: 270 MILLIGRAM  (TOTAL DOSE 270 MG)
     Route: 065
  7. BUSULFAN [Concomitant]
     Active Substance: BUSULFAN
     Indication: Product used for unknown indication
     Dosage: 420 MILLIGRAM (TOTAL DOSE 420 MG)
     Route: 065
  8. SOLU-MEDROL [Concomitant]
     Active Substance: METHYLPREDNISOLONE SODIUM SUCCINATE
     Indication: Product used for unknown indication
     Dosage: 60 MILLIGRAM, QD (60 MG/24H PULSES WERE ADMINISTERED WITH LATER DOSE REDUCTION AND SWITCH TO ORAL PR
     Route: 065
  9. SOLU-MEDROL [Concomitant]
     Active Substance: METHYLPREDNISOLONE SODIUM SUCCINATE
     Dosage: 60 MG, Q24H
     Route: 065
  10. SOLU-MEDROL [Concomitant]
     Active Substance: METHYLPREDNISOLONE SODIUM SUCCINATE
     Dosage: 250 MG, Q24H FOR 4 DAYS
     Route: 065
  11. METHYLPREDNISOLONE [Concomitant]
     Active Substance: METHYLPREDNISOLONE
     Indication: Product used for unknown indication
     Dosage: 12 MG, Q24H
     Route: 065
  12. METHYLPREDNISOLONE [Concomitant]
     Active Substance: METHYLPREDNISOLONE
     Dosage: 24 MG, Q24H
     Route: 065
  13. METHYLPREDNISOLONE [Concomitant]
     Active Substance: METHYLPREDNISOLONE
     Dosage: 54 MG, Q24H
     Route: 065
  14. METHYLPREDNISOLONE [Concomitant]
     Active Substance: METHYLPREDNISOLONE
     Dosage: 32 MG, Q24H
     Route: 065
  15. PROGRAF [Concomitant]
     Active Substance: TACROLIMUS
     Indication: Product used for unknown indication
     Dosage: 2 G, Q24H (STRENGTH 10 NG/ML)
     Route: 065
  16. PROGRAF [Concomitant]
     Active Substance: TACROLIMUS
     Dosage: 1 MG, Q24H
     Route: 065
  17. ENTOCORT [Concomitant]
     Active Substance: BUDESONIDE
     Indication: Product used for unknown indication
     Dosage: 9 MG, Q24H
     Route: 065

REACTIONS (34)
  - Obliterative bronchiolitis [Recovered/Resolved]
  - Obstruction [Recovered/Resolved]
  - Physical examination abnormal [Recovered/Resolved]
  - Respiratory disorder [Recovered/Resolved]
  - Hypoxia [Unknown]
  - Antibody test positive [Unknown]
  - Haemolysis [Unknown]
  - Laboratory test abnormal [Unknown]
  - MAGIC syndrome [Unknown]
  - Gastric mucosal lesion [Unknown]
  - Disease progression [Recovered/Resolved]
  - Graft versus host disease [Unknown]
  - Asthenia [Unknown]
  - Dyspnoea [Recovered/Resolved]
  - Visual impairment [Recovered/Resolved]
  - Thrombocytopenia [Unknown]
  - Epstein-Barr viraemia [Unknown]
  - Diarrhoea [Recovered/Resolved]
  - Splenomegaly [Unknown]
  - Inflammatory marker increased [Unknown]
  - Staphylococcus test positive [Unknown]
  - Rash pruritic [Unknown]
  - Rash erythematous [Unknown]
  - Dry skin [Unknown]
  - Conjunctival hyperaemia [Unknown]
  - Oral lichenoid reaction [Unknown]
  - Skin mass [Unknown]
  - Oral disorder [Recovered/Resolved]
  - Corneal lesion [Recovered/Resolved]
  - Skin exfoliation [Unknown]
  - Liver function test increased [Not Recovered/Not Resolved]
  - Hepatic enzyme increased [Unknown]
  - Weight increased [Unknown]
  - Pyrexia [Unknown]

NARRATIVE: CASE EVENT DATE: 20230528
